FAERS Safety Report 20544300 (Version 4)
Quarter: 2023Q2

REPORT INFORMATION
  Report Type: Report from Study
  Country: CA (occurrence: CA)
  Receive Date: 20220303
  Receipt Date: 20230428
  Transmission Date: 20230721
  Serious: Yes (Other)
  Sender: FDA-Public Use
  Company Number: CA-ABBVIE-22K-028-4297456-00

PATIENT
  Age: 59 Year
  Sex: Female

DRUGS (1)
  1. RINVOQ [Suspect]
     Active Substance: UPADACITINIB
     Indication: Rheumatoid arthritis
     Dosage: FORM STRENGTH: 15MG
     Route: 048
     Dates: start: 20210116

REACTIONS (10)
  - Chordoma [Unknown]
  - Pyrexia [Unknown]
  - Wound infection [Unknown]
  - Urinary tract infection [Unknown]
  - Pyrexia [Recovered/Resolved]
  - Confusional state [Unknown]
  - Fatigue [Unknown]
  - Prolapse [Unknown]
  - Memory impairment [Unknown]
  - Illness [Unknown]

NARRATIVE: CASE EVENT DATE: 20230301
